FAERS Safety Report 18670190 (Version 9)
Quarter: 2022Q3

REPORT INFORMATION
  Report Type: Spontaneous
  Country: IN (occurrence: IN)
  Receive Date: 20201228
  Receipt Date: 20220825
  Transmission Date: 20221026
  Serious: Yes (Other)
  Sender: FDA-Public Use
  Company Number: IN-PFIZER INC-2020028242

PATIENT
  Age: 80 Year
  Sex: Male
  Weight: 84.9 kg

DRUGS (6)
  1. INLYTA [Suspect]
     Active Substance: AXITINIB
     Indication: Metastatic renal cell carcinoma
     Dosage: 5 MG, 2X/DAY
     Route: 048
     Dates: start: 20191102
  2. INLYTA [Suspect]
     Active Substance: AXITINIB
     Dosage: 5 MG, 1X/DAY
     Route: 048
  3. ELIQUIS [Concomitant]
     Active Substance: APIXABAN
     Dosage: 2.5 MG, 2X/DAY (1-0-1)
  4. BIFILAC [BACILLUS COAGULANS] [Concomitant]
     Indication: Diarrhoea
     Dosage: 2 DF, 2X/DAY (2-0-2)
  5. LEUPROLIDE ACETATE [Concomitant]
     Active Substance: LEUPROLIDE ACETATE
     Indication: Prostate cancer
     Dosage: 22.5 MG
     Route: 030
  6. CALCIUM\CHOLECALCIFEROL [Concomitant]
     Active Substance: CALCIUM\CHOLECALCIFEROL
     Dosage: 500 MG, 2X/DAY (1-0-1)

REACTIONS (12)
  - Diabetes mellitus [Unknown]
  - Parkinson^s disease [Unknown]
  - Hypertension [Unknown]
  - Diarrhoea [Unknown]
  - Weight increased [Unknown]
  - Oxygen saturation decreased [Unknown]
  - Fatigue [Unknown]
  - Mouth ulceration [Unknown]
  - Muscle spasms [Unknown]
  - Hearing disability [Unknown]
  - Pain in extremity [Unknown]
  - Off label use [Unknown]
